FAERS Safety Report 21036099 (Version 1)
Quarter: 2022Q3

REPORT INFORMATION
  Report Type: Spontaneous
  Country: US (occurrence: US)
  Receive Date: 20220701
  Receipt Date: 20220701
  Transmission Date: 20221027
  Serious: No
  Sender: FDA-Public Use
  Company Number: US-THERAPEUTICSMD-2022TMD00184

PATIENT
  Age: 61 Year
  Sex: Female
  Weight: 63.946 kg

DRUGS (4)
  1. IMVEXXY [Suspect]
     Active Substance: ESTRADIOL
     Indication: Atrophic vulvovaginitis
     Dosage: 4 ?G, 2X/WEEK
     Route: 067
     Dates: start: 202110
  2. SYNTHROID [Concomitant]
     Active Substance: LEVOTHYROXINE SODIUM
     Dosage: 0.75 ?G, 6X/WEEK
  3. CYTOMEL [Concomitant]
     Active Substance: LIOTHYRONINE SODIUM
     Dosage: 0.5 ?G, 6X/WEEK
  4. UNSPECIFIED SUPPLEMENTS AND MINERALS [Concomitant]

REACTIONS (4)
  - Hypoaesthesia [Not Recovered/Not Resolved]
  - Myalgia [Not Recovered/Not Resolved]
  - Burning sensation [Not Recovered/Not Resolved]
  - Pain in extremity [Not Recovered/Not Resolved]

NARRATIVE: CASE EVENT DATE: 20211001
